FAERS Safety Report 10912140 (Version 1)
Quarter: 2015Q1

REPORT INFORMATION
  Report Type: Spontaneous
  Country: AR (occurrence: AR)
  Receive Date: 20150313
  Receipt Date: 20150313
  Transmission Date: 20150721
  Serious: Yes (Other)
  Sender: FDA-Public Use
  Company Number: AR-JNJFOC-20150308809

PATIENT
  Age: 67 Year
  Sex: Female
  Weight: 108 kg

DRUGS (2)
  1. SIMPONI [Suspect]
     Active Substance: GOLIMUMAB
     Indication: RHEUMATOID ARTHRITIS
     Route: 058
     Dates: start: 20141215
  2. ZOMARIST [Concomitant]
     Active Substance: VILDAGLIPTIN
     Route: 065

REACTIONS (3)
  - Fall [Not Recovered/Not Resolved]
  - Diabetes mellitus [Not Recovered/Not Resolved]
  - Uterine injury [Not Recovered/Not Resolved]

NARRATIVE: CASE EVENT DATE: 201502
